FAERS Safety Report 10243650 (Version 1)
Quarter: 2014Q2

REPORT INFORMATION
  Report Type: Spontaneous
  Country: US (occurrence: US)
  Receive Date: 20140618
  Receipt Date: 20140618
  Transmission Date: 20141212
  Serious: Yes (Other)
  Sender: FDA-Public Use
  Company Number: US-PFIZER INC-2014167266

PATIENT
  Age: 58 Year
  Sex: Male
  Weight: 72.56 kg

DRUGS (1)
  1. CHANTIX [Suspect]
     Indication: SMOKING CESSATION THERAPY
     Dosage: UNK, DAILY
     Dates: start: 201402, end: 201403

REACTIONS (1)
  - Depression [Unknown]
